FAERS Safety Report 16934953 (Version 1)
Quarter: 2019Q4

REPORT INFORMATION
  Report Type: Spontaneous
  Country: FR (occurrence: FR)
  Receive Date: 20191018
  Receipt Date: 20191018
  Transmission Date: 20200122
  Serious: Yes (Other)
  Sender: FDA-Public Use
  Company Number: FR-JNJFOC-20191022038

PATIENT
  Age: 85 Year
  Sex: Female

DRUGS (2)
  1. RIVAROXABAN [Suspect]
     Active Substance: RIVAROXABAN
     Indication: PULMONARY EMBOLISM
     Dosage: 20 MG, QD
     Route: 048
     Dates: start: 2019, end: 2019
  2. FUSIDIC ACID [Suspect]
     Active Substance: FUSIDIC ACID
     Indication: GENITAL INFECTION FEMALE
     Dosage: 1.5 G, TID
     Route: 065
     Dates: start: 2019, end: 2019

REACTIONS (4)
  - Genital infection female [Unknown]
  - Diarrhoea [Unknown]
  - Gastritis [Unknown]
  - Haemoglobin decreased [Unknown]

NARRATIVE: CASE EVENT DATE: 2019
